FAERS Safety Report 8889634 (Version 1)
Quarter: 2012Q4

REPORT INFORMATION
  Report Type: Spontaneous
  Country: US (occurrence: None)
  Receive Date: 20121105
  Receipt Date: 20121105
  Transmission Date: 20130627
  Serious: Yes (Disabling)
  Sender: FDA-Public Use
  Company Number: None

PATIENT
  Age: 67 Year
  Sex: Female
  Weight: 89.81 kg

DRUGS (1)
  1. TIKOSYN [Suspect]
     Indication: ATRIAL FIBRILLATION
     Dates: start: 20111116, end: 20120818

REACTIONS (9)
  - Visual impairment [None]
  - Decreased appetite [None]
  - Thirst [None]
  - Insomnia [None]
  - Fatigue [None]
  - Dizziness [None]
  - Headache [None]
  - Gait disturbance [None]
  - Sweat gland disorder [None]
